FAERS Safety Report 23381991 (Version 1)
Quarter: 2024Q1

REPORT INFORMATION
  Report Type: Spontaneous
  Country: US (occurrence: None)
  Receive Date: 20240108
  Receipt Date: 20240108
  Transmission Date: 20240410
  Serious: Yes (Death)
  Sender: FDA-Public Use
  Company Number: None

PATIENT
  Age: 68 Year
  Sex: Female

DRUGS (2)
  1. AMBRISENTAN [Suspect]
     Active Substance: AMBRISENTAN
     Indication: Pulmonary arterial hypertension
     Dosage: FREQUENCY : DAILY;?
     Route: 048
     Dates: start: 20210308, end: 20230125
  2. SILDENAFIL [Concomitant]
     Active Substance: SILDENAFIL
     Dates: start: 20210308, end: 20231225

REACTIONS (9)
  - Pain in extremity [None]
  - Peripheral swelling [None]
  - Erythema [None]
  - Shock haemorrhagic [None]
  - Retroperitoneal haemorrhage [None]
  - Metabolic acidosis [None]
  - Acute kidney injury [None]
  - Respiratory acidosis [None]
  - Cardiac arrest [None]

NARRATIVE: CASE EVENT DATE: 20231225
